FAERS Safety Report 15617359 (Version 1)
Quarter: 2018Q4

REPORT INFORMATION
  Report Type: Spontaneous
  Country: US (occurrence: US)
  Receive Date: 20181113
  Receipt Date: 20181113
  Transmission Date: 20190205
  Serious: Yes (Other)
  Sender: FDA-Public Use
  Company Number: None

PATIENT
  Age: 56 Year
  Sex: Male
  Weight: 101.25 kg

DRUGS (4)
  1. VASCEPA [Concomitant]
     Active Substance: ICOSAPENT ETHYL
  2. NEXIUM [Concomitant]
     Active Substance: ESOMEPRAZOLE MAGNESIUM
  3. ADVANCE WHITE EXTREME WHITENING TARTAR CONTROL [Suspect]
     Active Substance: SODIUM FLUORIDE
     Indication: DENTAL DISORDER PROPHYLAXIS
     Dosage: ?          OTHER STRENGTH:EXTREME WHITENING;QUANTITY:1 OUNCE(S);OTHER ROUTE:TOOTHPASTE?
     Dates: start: 20180901, end: 20181105
  4. SIMVASTATIN. [Concomitant]
     Active Substance: SIMVASTATIN

REACTIONS (2)
  - Oral discomfort [None]
  - Application site pain [None]

NARRATIVE: CASE EVENT DATE: 20181001
